FAERS Safety Report 5259960-1 (Version None)
Quarter: 2007Q1

REPORT INFORMATION
  Report Type: 
  Country: None (occurrence: None)
  Receive Date: 20070309
  Receipt Date: 20070228
  Transmission Date: 20070707
  Serious: Yes (Other)
  Sender: FDA-Public Use
  Company Number: GB-GLAXOSMITHKLINE-B0461320A

PATIENT
  Age: 30 Year
  Sex: Female

DRUGS (2)
  1. MALARONE [Suspect]
     Indication: MALARIA PROPHYLAXIS
     Route: 048
     Dates: start: 20070126, end: 20070202
  2. CONTRACEPTIVE PILL [Concomitant]
     Route: 048

REACTIONS (4)
  - DIARRHOEA [None]
  - EYELID OEDEMA [None]
  - RASH [None]
  - RASH GENERALISED [None]
